FAERS Safety Report 9197576 (Version 2)
Quarter: 2014Q2

REPORT INFORMATION
  Report Type: Spontaneous
  Country: US (occurrence: US)
  Receive Date: 20130328
  Receipt Date: 20140418
  Transmission Date: 20141212
  Serious: Yes (Other)
  Sender: FDA-Public Use
  Company Number: US-ASTRAZENECA-2013SE18621

PATIENT
  Age: 85 Year
  Sex: Male
  Weight: 69.9 kg

DRUGS (2)
  1. SEROQUEL IR [Suspect]
     Indication: DEPRESSION
     Route: 048
  2. SEROQUEL IR [Suspect]
     Indication: INSOMNIA
     Route: 048

REACTIONS (4)
  - Hypothermia [Recovered/Resolved with Sequelae]
  - Peripheral coldness [Recovered/Resolved with Sequelae]
  - Pain in extremity [Recovered/Resolved with Sequelae]
  - Chills [Recovered/Resolved with Sequelae]
